FAERS Safety Report 21398430 (Version 1)
Quarter: 2022Q3

REPORT INFORMATION
  Report Type: Spontaneous
  Country: US (occurrence: US)
  Receive Date: 20220930
  Receipt Date: 20220930
  Transmission Date: 20221027
  Serious: No
  Sender: FDA-Public Use
  Company Number: None

PATIENT

DRUGS (2)
  1. VASCEPA [Suspect]
     Active Substance: ICOSAPENT ETHYL
     Indication: Product used for unknown indication
     Dosage: FREQUENCY TEXT : IN THE AM
     Route: 048
  2. VASCEPA [Suspect]
     Active Substance: ICOSAPENT ETHYL
     Dosage: FREQUENCY TEXT : AT MEALTIME

REACTIONS (4)
  - Balance disorder [Unknown]
  - Back pain [Unknown]
  - Product dose omission in error [Recovered/Resolved]
  - Intentional underdose [Unknown]
